FAERS Safety Report 4493729-0 (Version None)
Quarter: 2004Q4

REPORT INFORMATION
  Report Type: 
  Country: None (occurrence: None)
  Receive Date: 20041105
  Receipt Date: 20041028
  Transmission Date: 20050328
  Serious: Yes (Hospitalization)
  Sender: FDA-Public Use
  Company Number: JP-ABBOTT-04P-087-0279407-00

PATIENT
  Age: 73 Year
  Sex: Female

DRUGS (2)
  1. CEFZON CAPSULE [Suspect]
     Indication: CELLULITIS
     Route: 048
     Dates: start: 20040930, end: 20041001
  2. CARBAMAZEPINE [Concomitant]
     Indication: DRUG USE FOR UNKNOWN INDICATION
     Dates: start: 20040721, end: 20041004

REACTIONS (4)
  - DYSPNOEA [None]
  - RASH [None]
  - STOMATITIS [None]
  - SWELLING [None]
